FAERS Safety Report 5195361-2 (Version None)
Quarter: 2006Q4

REPORT INFORMATION
  Report Type: 
  Country: None (occurrence: None)
  Receive Date: 20061229
  Receipt Date: 20061219
  Transmission Date: 20070319
  Serious: Yes (Other)
  Sender: FDA-Public Use
  Company Number: JP-PFIZER INC-2006155168

PATIENT
  Age: 66 Year
  Sex: Male

DRUGS (3)
  1. DALACIN S [Suspect]
     Route: 042
     Dates: start: 20061211, end: 20061217
  2. ZITHROMAC [Suspect]
     Route: 048
     Dates: start: 20061214, end: 20061216
  3. TARGOCID [Concomitant]
     Route: 042

REACTIONS (1)
  - PANCYTOPENIA [None]
